FAERS Safety Report 4480388-6 (Version None)
Quarter: 2004Q4

REPORT INFORMATION
  Report Type: 
  Country: None (occurrence: None)
  Receive Date: 20041018
  Receipt Date: 20041001
  Transmission Date: 20050328
  Serious: Yes (Death, Hospitalization)
  Sender: FDA-Public Use
  Company Number: 200410633BNE

PATIENT
  Age: 48 Year
  Sex: Male
  Weight: 65.3 kg

DRUGS (7)
  1. DACARBAZINE [Suspect]
     Indication: METASTATIC MALIGNANT MELANOMA
     Dates: start: 20040909
  2. SORAFENIB [Suspect]
     Indication: METASTATIC MALIGNANT MELANOMA
     Dates: start: 20040701, end: 20040902
  3. SORAFENIB [Suspect]
     Indication: METASTATIC MALIGNANT MELANOMA
     Dates: start: 20040909, end: 20040926
  4. BENDROFLUAZIDE [Concomitant]
  5. LISINOPRIL [Concomitant]
  6. FELODIPINE [Concomitant]
  7. CO-DANTHRAMER [Concomitant]

REACTIONS (4)
  - FATIGUE [None]
  - HYPOTENSION [None]
  - MALIGNANT MELANOMA [None]
  - MALIGNANT NEOPLASM PROGRESSION [None]
